FAERS Safety Report 18152865 (Version 3)
Quarter: 2021Q1

REPORT INFORMATION
  Report Type: Spontaneous
  Country: US (occurrence: US)
  Receive Date: 20200814
  Receipt Date: 20210128
  Transmission Date: 20210419
  Serious: Yes (Disabling, Other)
  Sender: FDA-Public Use
  Company Number: US-PURDUE-USA-2020-0160701

PATIENT
  Age: 75 Year
  Sex: Male

DRUGS (2)
  1. OXYCODONE HYDROCHLORIDE (SIMILAR TO NDA 22?272) [Suspect]
     Active Substance: OXYCODONE HYDROCHLORIDE
     Indication: CANCER PAIN
     Dosage: UNK
     Route: 048
  2. OXYCONTIN [Suspect]
     Active Substance: OXYCODONE HYDROCHLORIDE
     Indication: CANCER PAIN
     Dosage: UNKNOWN
     Route: 048

REACTIONS (7)
  - Cardiac disorder [Unknown]
  - Nervousness [Unknown]
  - Nightmare [Unknown]
  - Hallucination [Unknown]
  - Unevaluable event [Unknown]
  - Disability [Not Recovered/Not Resolved]
  - Night sweats [Unknown]
